FAERS Safety Report 4593883-6 (Version None)
Quarter: 2005Q1

REPORT INFORMATION
  Report Type: 
  Country: None (occurrence: None)
  Receive Date: 20050301
  Receipt Date: 20050222
  Transmission Date: 20050727
  Serious: Yes (Other)
  Sender: FDA-Public Use
  Company Number: IE-GLAXOSMITHKLINE-B0372587A

PATIENT
  Age: 35 Year
  Sex: Female

DRUGS (1)
  1. NIQUITIN CQ CLEAR 21MG [Suspect]
     Indication: SMOKING CESSATION THERAPY
     Route: 062
     Dates: start: 20050209, end: 20050209

REACTIONS (4)
  - ASTHENIA [None]
  - NAUSEA [None]
  - PARAESTHESIA [None]
  - PYREXIA [None]
